FAERS Safety Report 22160339 (Version 2)
Quarter: 2023Q2

REPORT INFORMATION
  Report Type: Spontaneous
  Country: CH (occurrence: CH)
  Receive Date: 20230331
  Receipt Date: 20230405
  Transmission Date: 20230721
  Serious: No
  Sender: FDA-Public Use
  Company Number: CH-MYLANLABS-2023M1026506

PATIENT
  Age: 75 Year
  Sex: Male

DRUGS (10)
  1. TOBI [Suspect]
     Active Substance: TOBRAMYCIN
     Indication: Pseudomonas infection
     Dosage: 300 MILLIGRAM, BID (2 TIMES PER DAY)
     Route: 065
     Dates: start: 20230308
  2. FOLIC ACID [Concomitant]
     Active Substance: FOLIC ACID
     Dosage: UNK
     Route: 065
  3. THIAMINE HYDROCHLORIDE [Concomitant]
     Active Substance: THIAMINE HYDROCHLORIDE
     Dosage: UNK
     Route: 065
  4. CALCIUM [Concomitant]
     Active Substance: CALCIUM
     Dosage: UNK
     Route: 065
  5. PANTOPRAZOLE SODIUM [Concomitant]
     Active Substance: PANTOPRAZOLE SODIUM
     Dosage: UNK
     Route: 065
  6. PREDNISOLONE [Concomitant]
     Active Substance: PREDNISOLONE
     Dosage: UNK
     Route: 065
  7. ASCORBIC ACID\MINERALS\VITAMINS [Concomitant]
     Active Substance: ASCORBIC ACID\MINERALS\VITAMINS
     Dosage: UNK
     Route: 065
  8. VANCOMYCIN [Concomitant]
     Active Substance: VANCOMYCIN
     Dosage: UNK
     Route: 048
  9. ATROVENT [Concomitant]
     Active Substance: IPRATROPIUM BROMIDE
     Dosage: UNK
     Route: 065
  10. ALBUTEROL [Concomitant]
     Active Substance: ALBUTEROL
     Dosage: UNK
     Route: 065

REACTIONS (1)
  - Off label use [Unknown]
